FAERS Safety Report 7932010-1 (Version None)
Quarter: 2011Q4

REPORT INFORMATION
  Report Type: 
  Country: None (occurrence: None)
  Receive Date: 20111121
  Receipt Date: 20111108
  Transmission Date: 20120403
  Serious: Yes (Hospitalization, Other)
  Sender: FDA-Public Use
  Company Number: US-ELI_LILLY_AND_COMPANY-US201106005445

PATIENT
  Sex: Female

DRUGS (10)
  1. PREDNISONE TAB [Concomitant]
  2. ENBREL [Concomitant]
  3. METFORMIN HCL [Concomitant]
  4. VITAMIN D [Concomitant]
  5. FOLIC ACID [Concomitant]
  6. FORTEO [Suspect]
     Dosage: 20 UG, QD
     Dates: end: 20111001
  7. FORTEO [Suspect]
     Indication: OSTEOPOROSIS
     Dosage: 20 UG, QD
     Route: 065
     Dates: start: 20110201
  8. CALCIUM [Concomitant]
  9. METHOTREXATE [Concomitant]
  10. ZOLPIDEM [Concomitant]

REACTIONS (6)
  - ARTHRITIS [None]
  - IMMUNE SYSTEM DISORDER [None]
  - CHEST PAIN [None]
  - MYOCARDIAL INFARCTION [None]
  - PNEUMONIA [None]
  - CORONARY ARTERY OCCLUSION [None]
